FAERS Safety Report 18918690 (Version 1)
Quarter: 2021Q1

REPORT INFORMATION
  Report Type: Report from Study
  Country: CO (occurrence: CO)
  Receive Date: 20210220
  Receipt Date: 20210220
  Transmission Date: 20210420
  Serious: Yes (Hospitalization, Other)
  Sender: FDA-Public Use
  Company Number: CO-AMGEN-COLSL2020204199

PATIENT
  Age: 64 Year
  Sex: Male

DRUGS (1)
  1. REPATHA [Suspect]
     Active Substance: EVOLOCUMAB
     Indication: LOW DENSITY LIPOPROTEIN INCREASED
     Dosage: 140 MILLIGRAM, Q2WK
     Route: 058
     Dates: start: 20181030, end: 20201105

REACTIONS (6)
  - Ophthalmic herpes zoster [Recovered/Resolved]
  - Angina unstable [Recovered/Resolved]
  - Dysbiosis [Not Recovered/Not Resolved]
  - Renal failure [Not Recovered/Not Resolved]
  - Hepatic failure [Not Recovered/Not Resolved]
  - Herpes zoster [Recovered/Resolved]

NARRATIVE: CASE EVENT DATE: 20201125
